FAERS Safety Report 9881592 (Version 1)
Quarter: 2014Q1

REPORT INFORMATION
  Report Type: Spontaneous
  Country: US (occurrence: None)
  Receive Date: 20140205
  Receipt Date: 20140205
  Transmission Date: 20141002
  Serious: No
  Sender: FDA-Public Use
  Company Number: IMP_07188_2014

PATIENT
  Age: 24 Year
  Sex: Male

DRUGS (3)
  1. BUPROPION [Suspect]
     Indication: PRODUCT USED FOR UNKNOWN INDICATION
  2. METHYLPHENIDATE [Suspect]
     Indication: PRODUCT USED FOR UNKNOWN INDICATION
  3. POLYETHYLENE GLYCOL [Suspect]
     Route: 048

REACTIONS (13)
  - Completed suicide [None]
  - Feeling abnormal [None]
  - Tremor [None]
  - Mydriasis [None]
  - Agitation [None]
  - Confusional state [None]
  - Vomiting [None]
  - Aspiration [None]
  - Cardiac arrest [None]
  - Exposure via ingestion [None]
  - Grand mal convulsion [None]
  - Heart rate increased [None]
  - Blood pressure increased [None]
